FAERS Safety Report 9374197 (Version 1)
Quarter: 2013Q2

REPORT INFORMATION
  Report Type: Spontaneous
  Country: US (occurrence: US)
  Receive Date: 20130628
  Receipt Date: 20130628
  Transmission Date: 20140414
  Serious: No
  Sender: FDA-Public Use
  Company Number: US-PFIZER INC-2013191313

PATIENT
  Sex: Female
  Weight: 87.26 kg

DRUGS (3)
  1. LYRICA [Suspect]
     Indication: POLYNEUROPATHY
     Dosage: 150 MG, 1X/DAY (50 MG CAPS AT DINNER TIME COMBINED WITH 100 MG)
     Route: 048
  2. LYRICA [Interacting]
     Dosage: 100 MG, 3X/DAY
     Route: 048
  3. CYMBALTA [Interacting]
     Dosage: UNK

REACTIONS (2)
  - Drug interaction [Unknown]
  - Memory impairment [Unknown]
